FAERS Safety Report 8174228-1 (Version None)
Quarter: 2012Q1

REPORT INFORMATION
  Report Type: 
  Country: None (occurrence: None)
  Receive Date: 20120229
  Receipt Date: 20120120
  Transmission Date: 20120608
  Serious: Yes (Other)
  Sender: FDA-Public Use
  Company Number: CA-JNJFOC-20120207804

PATIENT
  Sex: Female
  Weight: 82 kg

DRUGS (4)
  1. REMICADE [Suspect]
     Indication: CROHN'S DISEASE
     Route: 042
     Dates: start: 20111118
  2. SOLU-CORTEF [Concomitant]
     Indication: PREMEDICATION
     Dosage: 30 MINUTES BEFORE INFUSION
     Route: 042
  3. BENADRYL [Concomitant]
     Indication: PREMEDICATION
     Route: 042
  4. BENADRYL [Concomitant]
     Route: 042

REACTIONS (3)
  - HOT FLUSH [None]
  - THROAT TIGHTNESS [None]
  - ERYTHEMA [None]
